FAERS Safety Report 7204580-2 (Version None)
Quarter: 2010Q4

REPORT INFORMATION
  Report Type: 
  Country: None (occurrence: None)
  Receive Date: 20101230
  Receipt Date: 20101223
  Transmission Date: 20110411
  Serious: Yes (Other)
  Sender: FDA-Public Use
  Company Number: BR-PFIZER INC-2010166026

PATIENT
  Age: 59 Year
  Sex: Female
  Weight: 54 kg

DRUGS (7)
  1. CHAMPIX [Suspect]
     Indication: SMOKING CESSATION THERAPY
     Dosage: UNK
     Route: 048
     Dates: start: 20101126
  2. CHAMPIX [Suspect]
     Dosage: 1 MG, 2X/DAY (EVERY 12 HOURS)
     Route: 048
  3. LIPITOR [Concomitant]
     Indication: BLOOD CHOLESTEROL INCREASED
     Dosage: UNK
  4. RIVOTRIL [Concomitant]
     Dosage: UNK
  5. PROPRANOLOL [Concomitant]
     Dosage: 40 MG, UNK
  6. CRESTOR [Concomitant]
     Indication: BLOOD CHOLESTEROL
     Dosage: TWICE WEEKLY
  7. DOLAMIN [Concomitant]
     Indication: PAIN
     Dosage: WHEN FEELING PAIN

REACTIONS (3)
  - AGGRESSION [None]
  - DEPENDENCE [None]
  - MEMORY IMPAIRMENT [None]
